FAERS Safety Report 10376293 (Version 1)
Quarter: 2014Q3

REPORT INFORMATION
  Report Type: Spontaneous
  Country: US (occurrence: US)
  Receive Date: 20140811
  Receipt Date: 20140811
  Transmission Date: 20150326
  Serious: No
  Sender: FDA-Public Use
  Company Number: US-ASTRAZENECA-2014SE13244

PATIENT
  Age: 57 Year
  Sex: Male
  Weight: 78 kg

DRUGS (9)
  1. TESTOSTERONE. [Concomitant]
     Active Substance: TESTOSTERONE
     Route: 050
     Dates: start: 2012
  2. ARIMIDEX [Suspect]
     Active Substance: ANASTROZOLE
     Indication: ANDROGEN DEFICIENCY
     Dosage: TWO 1MG PER WEEK MONTH
     Route: 048
     Dates: end: 201307
  3. ARIMIDEX [Suspect]
     Active Substance: ANASTROZOLE
     Indication: BLOOD OESTROGEN INCREASED
     Dosage: TWO 1MG PER WEEK MONTH
     Route: 048
     Dates: end: 201307
  4. DIINDOLYLMETHANE [Concomitant]
     Indication: LIVER DISORDER
     Dosage: UNKNOWN PRN
  5. ARIMIDEX [Suspect]
     Active Substance: ANASTROZOLE
     Indication: HYPOGONADISM
     Route: 048
     Dates: start: 201307, end: 201402
  6. ARIMIDEX [Suspect]
     Active Substance: ANASTROZOLE
     Indication: ANDROGEN DEFICIENCY
     Route: 048
     Dates: start: 201307, end: 201402
  7. HCH [Concomitant]
     Indication: TESTICULAR ATROPHY
     Dosage: 200 CC EVERY 3RD DAY
  8. ARIMIDEX [Suspect]
     Active Substance: ANASTROZOLE
     Indication: HYPOGONADISM
     Dosage: TWO 1MG PER WEEK MONTH
     Route: 048
     Dates: end: 201307
  9. ARIMIDEX [Suspect]
     Active Substance: ANASTROZOLE
     Indication: BLOOD OESTROGEN INCREASED
     Route: 048
     Dates: start: 201307, end: 201402

REACTIONS (6)
  - Blood testosterone abnormal [Unknown]
  - Off label use [Unknown]
  - Adverse event [Unknown]
  - Intentional product misuse [Unknown]
  - Oestradiol decreased [Unknown]
  - Body temperature decreased [Unknown]
